FAERS Safety Report 13697040 (Version 1)
Quarter: 2017Q2

REPORT INFORMATION
  Report Type: Spontaneous
  Country: US (occurrence: US)
  Receive Date: 20170627
  Receipt Date: 20170627
  Transmission Date: 20170830
  Serious: Yes (Disabling)
  Sender: FDA-Public Use
  Company Number: None

PATIENT
  Age: 60 Year
  Sex: Female
  Weight: 72 kg

DRUGS (14)
  1. PHENERGAN [Concomitant]
     Active Substance: PROMETHAZINE HYDROCHLORIDE
  2. XYZAL [Concomitant]
     Active Substance: LEVOCETIRIZINE DIHYDROCHLORIDE
  3. PROBIOTICS [Concomitant]
     Active Substance: PROBIOTICS NOS
  4. ANU-CORT [Concomitant]
  5. PREMPRO [Concomitant]
     Active Substance: ESTROGENS, CONJUGATED\MEDROXYPROGESTERONE ACETATE
  6. DILAUDID [Concomitant]
     Active Substance: HYDROMORPHONE HYDROCHLORIDE
  7. SUCRALFATE. [Concomitant]
     Active Substance: SUCRALFATE
  8. VALIUM [Concomitant]
     Active Substance: DIAZEPAM
  9. METHOTREXATE LOT#16G15KA [Suspect]
     Active Substance: METHOTREXATE SODIUM
     Indication: AUTOINFLAMMATORY DISEASE
     Dosage: OTHER STRENGTH:MG/ML;QUANTITY:12 OUNCE(S);OTHER FREQUENCY:ONCE PER WEEK;?
     Route: 058
     Dates: start: 20170420, end: 20170622
  10. PANTOPRAZOLE [Concomitant]
     Active Substance: PANTOPRAZOLE
  11. PREMARIN [Concomitant]
     Active Substance: ESTROGENS, CONJUGATED
  12. CALCIUM [Concomitant]
     Active Substance: CALCIUM
  13. FLOLATE [Concomitant]
  14. EMLA [Concomitant]
     Active Substance: LIDOCAINE\PRILOCAINE

REACTIONS (6)
  - Headache [None]
  - Disease recurrence [None]
  - Mood altered [None]
  - Hair growth abnormal [None]
  - Lethargy [None]
  - Product lot number issue [None]

NARRATIVE: CASE EVENT DATE: 20170607
